FAERS Safety Report 25554984 (Version 2)
Quarter: 2025Q3

REPORT INFORMATION
  Report Type: Spontaneous
  Country: EU (occurrence: EU)
  Receive Date: 20250715
  Receipt Date: 20250722
  Transmission Date: 20251021
  Serious: No
  Sender: PFIZER
  Company Number: EU-PFIZER INC-202500139783

PATIENT
  Sex: Female

DRUGS (1)
  1. ESTRADIOL [Suspect]
     Active Substance: ESTRADIOL

REACTIONS (1)
  - Vulvovaginal discomfort [Not Recovered/Not Resolved]
